FAERS Safety Report 21901597 (Version 2)
Quarter: 2023Q1

REPORT INFORMATION
  Report Type: Report from Study
  Country: US (occurrence: US)
  Receive Date: 20230123
  Receipt Date: 20230124
  Transmission Date: 20230418
  Serious: Yes (Hospitalization)
  Sender: FDA-Public Use
  Company Number: US-AMGEN-USACT2023010474

PATIENT
  Age: 58 Year
  Sex: Female
  Weight: 85.5 kg

DRUGS (5)
  1. SOTORASIB [Suspect]
     Active Substance: SOTORASIB
     Indication: Colorectal cancer stage IV
     Dosage: 960 MILLIGRAM
     Route: 048
     Dates: start: 20221128
  2. SOTORASIB [Suspect]
     Active Substance: SOTORASIB
     Indication: K-ras gene mutation
  3. BI-1701963 [Suspect]
     Active Substance: BI-1701963
     Indication: Colorectal cancer stage IV
     Dosage: 200 MILLIGRAM
     Route: 048
     Dates: start: 20221128
  4. BI-1701963 [Suspect]
     Active Substance: BI-1701963
     Indication: K-ras gene mutation
  5. HYDROCHLOROTHIAZIDE [Concomitant]
     Active Substance: HYDROCHLOROTHIAZIDE
     Dosage: UNK

REACTIONS (1)
  - Hypertension [Recovered/Resolved]

NARRATIVE: CASE EVENT DATE: 20230113
